FAERS Safety Report 19927764 (Version 1)
Quarter: 2021Q4

REPORT INFORMATION
  Report Type: Spontaneous
  Country: US (occurrence: US)
  Receive Date: 20211006
  Receipt Date: 20211006
  Transmission Date: 20220303
  Serious: Yes (Death)
  Sender: FDA-Public Use
  Company Number: None

PATIENT
  Age: 64 Year
  Sex: Male
  Weight: 146.2 kg

DRUGS (13)
  1. BARICITINIB [Suspect]
     Active Substance: BARICITINIB
     Indication: COVID-19
     Dates: start: 20210921, end: 20210926
  2. CEFEPIME [Concomitant]
     Active Substance: CEFEPIME HYDROCHLORIDE
     Dates: start: 20210927, end: 20210929
  3. CEFAZOLIN [Concomitant]
     Active Substance: CEFAZOLIN
     Dates: start: 20211001, end: 20211004
  4. DEXAMETHASONE [Concomitant]
     Active Substance: DEXAMETHASONE
     Dates: start: 20210918, end: 20210927
  5. ENOXAPARIN [Concomitant]
     Active Substance: ENOXAPARIN
     Dates: start: 20210919, end: 20211004
  6. CISATRACURIUM [Concomitant]
     Active Substance: CISATRACURIUM
     Dates: start: 20210927, end: 20211004
  7. epoprostenol inahlation [Concomitant]
     Dates: start: 20210927, end: 20211004
  8. fentanyl drip [Concomitant]
     Dates: start: 20210923, end: 20211004
  9. midazolam drip [Concomitant]
     Dates: start: 20210927, end: 20211004
  10. NOREPINEPHRINE [Concomitant]
     Active Substance: NOREPINEPHRINE
     Dates: start: 20210927, end: 20211004
  11. PROPOFOL [Concomitant]
     Active Substance: PROPOFOL
     Dates: start: 20210923, end: 20211004
  12. vasopressin drip [Concomitant]
     Dates: start: 20211003, end: 20211004
  13. FAMOTIDINE [Concomitant]
     Active Substance: FAMOTIDINE
     Dates: start: 20210918, end: 20211004

REACTIONS (5)
  - Pyrexia [None]
  - White blood cell count increased [None]
  - Hypotension [None]
  - Staphylococcal infection [None]
  - General physical health deterioration [None]

NARRATIVE: CASE EVENT DATE: 20210927
